FAERS Safety Report 7266640-X (Version None)
Quarter: 2011Q1

REPORT INFORMATION
  Report Type: 
  Country: None (occurrence: None)
  Receive Date: 20110131
  Receipt Date: 20110118
  Transmission Date: 20110831
  Serious: Yes (Hospitalization)
  Sender: FDA-Public Use
  Company Number: PK-MYLANLABS-2011S1001319

PATIENT
  Age: 25 Year
  Sex: Male

DRUGS (6)
  1. CEFTRIAXONE [Concomitant]
     Route: 042
  2. TRETINOIN [Suspect]
     Dosage: DAYS 1-30
     Route: 065
  3. METRONIDAZOLE [Concomitant]
     Route: 042
  4. PREDNISOLONE [Concomitant]
  5. AMIKACIN [Concomitant]
     Route: 042
  6. IDARUBICIN [Suspect]
     Dosage: 15MG IN 100ML SALINE OVER 30MIN ON DAYS 2, 4, 6 AND 8.
     Route: 042

REACTIONS (2)
  - ENTEROCOCCAL INFECTION [None]
  - NEUTROPENIA [None]
